FAERS Safety Report 11334477 (Version 1)
Quarter: 2015Q3

REPORT INFORMATION
  Report Type: Report from Study
  Country: US (occurrence: US)
  Receive Date: 20150804
  Receipt Date: 20150804
  Transmission Date: 20151125
  Serious: Yes (Hospitalization)
  Sender: FDA-Public Use
  Company Number: US-ROCHE-1601841

PATIENT
  Age: 57 Year
  Sex: Male

DRUGS (3)
  1. XELODA [Suspect]
     Active Substance: CAPECITABINE
     Indication: GASTRIC CANCER
     Dosage: 8 PILLS/DAY
     Route: 065
  2. CISPLATIN. [Concomitant]
     Active Substance: CISPLATIN
  3. HERCEPTIN [Suspect]
     Active Substance: TRASTUZUMAB
     Indication: GASTRIC CANCER
     Route: 065

REACTIONS (3)
  - Burning sensation [Unknown]
  - Cognitive disorder [Unknown]
  - Fatigue [Unknown]
